FAERS Safety Report 24405091 (Version 2)
Quarter: 2024Q4

REPORT INFORMATION
  Report Type: Spontaneous
  Country: US (occurrence: US)
  Receive Date: 20241007
  Receipt Date: 20241009
  Transmission Date: 20250114
  Serious: Yes (Other)
  Sender: SANOFI AVENTIS
  Company Number: US-SA-2024SA284085

PATIENT
  Sex: Female
  Weight: 70.295 kg

DRUGS (3)
  1. DUPIXENT [Suspect]
     Active Substance: DUPILUMAB
     Indication: Dermatitis atopic
     Dosage: 300 MG, QOW
     Route: 058
  2. PREDNISONE [Suspect]
     Active Substance: PREDNISONE
     Dosage: UNK
  3. ALBUTEROL SULFATE [Concomitant]
     Active Substance: ALBUTEROL SULFATE
     Dosage: UNK

REACTIONS (6)
  - Haematochezia [Unknown]
  - Respiratory tract infection [Unknown]
  - Cough [Unknown]
  - Dermatitis atopic [Unknown]
  - Rash [Unknown]
  - Product dose omission issue [Unknown]
